FAERS Safety Report 9364912 (Version 1)
Quarter: 2013Q2

REPORT INFORMATION
  Report Type: Spontaneous
  Country: US (occurrence: US)
  Receive Date: 20130624
  Receipt Date: 20130624
  Transmission Date: 20140414
  Serious: Yes (Hospitalization)
  Sender: FDA-Public Use
  Company Number: US-BAXTER-2013BAX021650

PATIENT
  Age: 61 Year
  Sex: Female

DRUGS (1)
  1. DIANEAL LOW CALCIUM [Suspect]
     Indication: PERITONEAL DIALYSIS
     Route: 033

REACTIONS (6)
  - Delirium [Not Recovered/Not Resolved]
  - Arthralgia [Not Recovered/Not Resolved]
  - Back pain [Not Recovered/Not Resolved]
  - Blood glucose increased [Not Recovered/Not Resolved]
  - Mental status changes [Unknown]
  - Dyspnoea [Not Recovered/Not Resolved]
